APPROVED DRUG PRODUCT: CLINDAMYCIN PHOSPHATE AND BENZOYL PEROXIDE
Active Ingredient: BENZOYL PEROXIDE; CLINDAMYCIN PHOSPHATE
Strength: 5%;EQ 1% BASE
Dosage Form/Route: GEL;TOPICAL
Application: A204087 | Product #001 | TE Code: AB
Applicant: ENCUBE ETHICALS PRIVATE LTD
Approved: Jun 27, 2017 | RLD: No | RS: No | Type: RX